FAERS Safety Report 5981274-2 (Version None)
Quarter: 2008Q4

REPORT INFORMATION
  Report Type: 
  Country: None (occurrence: None)
  Receive Date: 20081205
  Receipt Date: 20081125
  Transmission Date: 20090506
  Serious: Yes (Hospitalization)
  Sender: FDA-Public Use
  Company Number: JP-JNJFOC-20081201418

PATIENT
  Sex: Male
  Weight: 63 kg

DRUGS (8)
  1. REMICADE [Suspect]
     Route: 042
  2. REMICADE [Suspect]
     Route: 042
  3. REMICADE [Suspect]
     Indication: CROHN'S DISEASE
     Dosage: 1 INFUSION
     Route: 042
  4. PENTASA [Concomitant]
     Route: 048
  5. MIYABM [Concomitant]
     Route: 048
  6. CELESTONE [Concomitant]
  7. ELENTAL [Concomitant]
     Dosage: DOSE: 1 PACK BID
     Route: 048
  8. FERROMIA [Concomitant]
     Route: 048

REACTIONS (1)
  - HERPES ZOSTER [None]
